FAERS Safety Report 5152239-8 (Version None)
Quarter: 2006Q4

REPORT INFORMATION
  Report Type: 
  Country: None (occurrence: None)
  Receive Date: 20061114
  Receipt Date: 20061114
  Transmission Date: 20070319
  Serious: Yes (Other)
  Sender: FDA-Public Use
  Company Number: None

PATIENT
  Age: 13 Year
  Sex: Male
  Weight: 32.659 kg

DRUGS (5)
  1. ABILIFY [Suspect]
     Indication: AFFECTIVE DISORDER
     Dosage: 1 1/2 TABS   EACH EVENING  PO
     Route: 048
     Dates: start: 20040619, end: 20060921
  2. ADDERALL 10 [Concomitant]
     Indication: ANGER
  3. TEGRETOL-XR [Concomitant]
  4. ALBUTEROL [Concomitant]
  5. ZYRTEC [Concomitant]

REACTIONS (3)
  - BLOOD TRIGLYCERIDES INCREASED [None]
  - HIGH DENSITY LIPOPROTEIN DECREASED [None]
  - VERY LOW DENSITY LIPOPROTEIN INCREASED [None]
